FAERS Safety Report 14354997 (Version 1)
Quarter: 2018Q1

REPORT INFORMATION
  Report Type: Report from Study
  Country: IL (occurrence: IL)
  Receive Date: 20180105
  Receipt Date: 20180105
  Transmission Date: 20180509
  Serious: Yes (Other)
  Sender: FDA-Public Use
  Company Number: PHHY2018IL000822

PATIENT
  Sex: Female

DRUGS (1)
  1. SANDOSTATIN LAR DEPOT [Suspect]
     Active Substance: OCTREOTIDE ACETATE
     Indication: NEUROENDOCRINE TUMOUR
     Dosage: 30 MG, Q4W
     Route: 030
     Dates: start: 20170810

REACTIONS (3)
  - Tricuspid valve thickening [Not Recovered/Not Resolved]
  - 5-hydroxyindolacetic acid decreased [Unknown]
  - Tricuspid valve incompetence [Not Recovered/Not Resolved]
